FAERS Safety Report 11623045 (Version 1)
Quarter: 2015Q4

REPORT INFORMATION
  Report Type: Spontaneous
  Country: US (occurrence: US)
  Receive Date: 20151013
  Receipt Date: 20151013
  Transmission Date: 20160304
  Serious: No
  Sender: FDA-Public Use
  Company Number: US-JNJFOC-20150116940

PATIENT
  Age: 62 Year
  Sex: Female
  Weight: 76.2 kg

DRUGS (2)
  1. TYLENOL EXTRA STRENGTH [Suspect]
     Active Substance: ACETAMINOPHEN
     Indication: ARTHRALGIA
     Dosage: MORNING AND NIGHT
     Route: 048
  2. TYLENOL EXTRA STRENGTH [Suspect]
     Active Substance: ACETAMINOPHEN
     Indication: ARTHRALGIA
     Dosage: MORNING AND NIGHT
     Route: 048

REACTIONS (3)
  - Inappropriate schedule of drug administration [Unknown]
  - Product closure removal difficult [Unknown]
  - Drug ineffective [Unknown]
